FAERS Safety Report 24727117 (Version 1)
Quarter: 2024Q4

REPORT INFORMATION
  Report Type: Spontaneous
  Country: US (occurrence: US)
  Receive Date: 20241212
  Receipt Date: 20241212
  Transmission Date: 20250115
  Serious: No
  Sender: PFIZER
  Company Number: US-PFIZER INC-202400317840

PATIENT
  Age: 72 Year
  Sex: Female
  Weight: 40.37 kg

DRUGS (2)
  1. DIFLUCAN [Suspect]
     Active Substance: FLUCONAZOLE
     Indication: Vulvovaginal candidiasis
     Dosage: UNK, 1X/DAY; CUT IN HALF OR QUARTERS SOMETIMES
     Route: 048
     Dates: start: 2014
  2. FD+C RED NO. 40 [Suspect]
     Active Substance: FD+C RED NO. 40
     Dosage: UNK

REACTIONS (4)
  - Allergic reaction to excipient [Recovered/Resolved]
  - Urticaria [Recovered/Resolved]
  - Pruritus [Recovered/Resolved]
  - Off label use [Unknown]

NARRATIVE: CASE EVENT DATE: 20140101
